FAERS Safety Report 24167150 (Version 2)
Quarter: 2024Q4

REPORT INFORMATION
  Report Type: Spontaneous
  Country: US (occurrence: US)
  Receive Date: 20240802
  Receipt Date: 20241025
  Transmission Date: 20250115
  Serious: No
  Sender: GLAXOSMITHKLINE
  Company Number: US-GSK-US2024AMR093911

PATIENT
  Sex: Female

DRUGS (3)
  1. SUMATRIPTAN SUCCINATE [Suspect]
     Active Substance: SUMATRIPTAN SUCCINATE
     Indication: Product used for unknown indication
     Dosage: 4 MG, 2-UD SYRINGE ,KIT,4MG/0.5ML
  2. SUMATRIPTAN SUCCINATE [Suspect]
     Active Substance: SUMATRIPTAN SUCCINATE
  3. STADOL [Concomitant]
     Active Substance: BUTORPHANOL TARTRATE
     Indication: Headache
     Dosage: UNK

REACTIONS (4)
  - Migraine [Unknown]
  - Headache [Unknown]
  - Product dose omission issue [Unknown]
  - Product complaint [Unknown]
